FAERS Safety Report 22067817 (Version 1)
Quarter: 2023Q1

REPORT INFORMATION
  Report Type: Spontaneous
  Country: CA (occurrence: CA)
  Receive Date: 20230307
  Receipt Date: 20230307
  Transmission Date: 20230417
  Serious: Yes (Other)
  Sender: FDA-Public Use
  Company Number: CA-BAYER-2023A026305

PATIENT
  Sex: Female

DRUGS (6)
  1. EYLEA [Suspect]
     Active Substance: AFLIBERCEPT
     Indication: Age-related macular degeneration
     Dosage: EVERY 4-5 WEEKS, SOLUTION FOR INJECTION, STRENGTH: 40 MG/ML
     Dates: start: 20201024, end: 20201024
  2. EYLEA [Suspect]
     Active Substance: AFLIBERCEPT
     Dosage: EVERY 4-5 WEEKS, SOLUTION FOR INJECTION, STRENGTH: 40 MG/ML
     Dates: start: 20220118, end: 20220118
  3. EYLEA [Suspect]
     Active Substance: AFLIBERCEPT
     Dosage: EVERY 4-5 WEEKS, SOLUTION FOR INJECTION, STRENGTH: 40 MG/ML
     Dates: start: 20220614, end: 20220614
  4. EYLEA [Suspect]
     Active Substance: AFLIBERCEPT
     Dosage: EVERY 4-5 WEEKS, SOLUTION FOR INJECTION, STRENGTH: 40 MG/ML
     Dates: start: 20230207, end: 20230207
  5. BEOVU [BROLUCIZUMAB DBLL] [Concomitant]
     Indication: Product used for unknown indication
     Dosage: UNK, Q4WK
     Dates: start: 20220215, end: 20220510
  6. AVASTIN [Concomitant]
     Active Substance: BEVACIZUMAB
     Indication: Product used for unknown indication
     Dosage: UNK, UNK, Q4WK
     Dates: start: 20200604, end: 20201027

REACTIONS (2)
  - Visual impairment [Unknown]
  - Drug ineffective [Unknown]

NARRATIVE: CASE EVENT DATE: 20230221
